FAERS Safety Report 7549144-6 (Version None)
Quarter: 2011Q2

REPORT INFORMATION
  Report Type: 
  Country: None (occurrence: None)
  Receive Date: 20110615
  Receipt Date: 20110531
  Transmission Date: 20111010
  Serious: Yes (Hospitalization, Other)
  Sender: FDA-Public Use
  Company Number: PHHY2011IN51137

PATIENT
  Age: 25 Year
  Sex: Female

DRUGS (4)
  1. METOPROLOL [Suspect]
     Dosage: 50 MG, UNK
  2. VERAPAMIL [Suspect]
     Dosage: 40 MG, UNK
  3. CLONAZEPAM [Concomitant]
     Dosage: 1 MG, UNK
  4. SERTRALINE HYDROCHLORIDE [Concomitant]
     Indication: DEPRESSION
     Dosage: 50 MG, UNK

REACTIONS (13)
  - BRADYCARDIA [None]
  - PALLOR [None]
  - STRESS [None]
  - BLINDNESS [None]
  - ATRIOVENTRICULAR BLOCK FIRST DEGREE [None]
  - HEART RATE IRREGULAR [None]
  - VISUAL ACUITY REDUCED [None]
  - BLOOD PRESSURE DECREASED [None]
  - OVERDOSE [None]
  - OPTIC ISCHAEMIC NEUROPATHY [None]
  - OPTIC DISC DISORDER [None]
  - VISUAL IMPAIRMENT [None]
  - IRRITABILITY [None]
